FAERS Safety Report 6472934-8 (Version None)
Quarter: 2009Q4

REPORT INFORMATION
  Report Type: 
  Country: None (occurrence: None)
  Receive Date: 20091203
  Receipt Date: 20090828
  Transmission Date: 20100525
  Serious: No
  Sender: FDA-Public Use
  Company Number: US-AMGEN-KDL325365

PATIENT
  Sex: Female
  Weight: 58.6 kg

DRUGS (5)
  1. ENBREL [Suspect]
     Indication: PSORIATIC ARTHROPATHY
     Route: 058
     Dates: start: 20080819
  2. METHOTREXATE [Concomitant]
     Route: 048
  3. LIDEX [Concomitant]
     Route: 061
  4. TOLMETIN [Concomitant]
  5. UNSPECIFIED CONTRACEPTIVE [Concomitant]

REACTIONS (3)
  - INJECTION SITE RASH [None]
  - PHARYNGITIS [None]
  - TONSILLITIS [None]
